FAERS Safety Report 4621686-2 (Version None)
Quarter: 2005Q1

REPORT INFORMATION
  Report Type: 
  Country: None (occurrence: None)
  Receive Date: 20050329
  Receipt Date: 20050317
  Transmission Date: 20050727
  Serious: Yes (Death)
  Sender: FDA-Public Use
  Company Number: JP-JNJFOC-20050102782

PATIENT
  Age: 19 Year
  Sex: Male

DRUGS (12)
  1. RISPERDAL [Suspect]
     Route: 049
  2. RISPERDAL [Suspect]
     Indication: DRUG USE FOR UNKNOWN INDICATION
     Route: 049
  3. ZOTEPINE [Concomitant]
  4. QUIETAPINE FUMARATE [Concomitant]
  5. CARBAMAZEPINE [Concomitant]
  6. CHLORPROMAZINE HCL [Concomitant]
  7. TRIHEXYPHENIDYL HCL [Concomitant]
  8. NITRAZEPAM [Concomitant]
  9. LORAZEPAM [Concomitant]
  10. TRIAZOLAM [Concomitant]
  11. MOSAPRIDE CITRATE [Concomitant]
  12. FLUNITRAZEPAM [Concomitant]

REACTIONS (2)
  - DRUG WITHDRAWAL SYNDROME [None]
  - PANCREATITIS [None]
